FAERS Safety Report 11045001 (Version 1)
Quarter: 2015Q2

REPORT INFORMATION
  Report Type: Spontaneous
  Country: IT (occurrence: IT)
  Receive Date: 20150417
  Receipt Date: 20150417
  Transmission Date: 20150821
  Serious: Yes (Other)
  Sender: FDA-Public Use
  Company Number: PHHY2015IT039657

PATIENT
  Age: 16 Year
  Sex: Female

DRUGS (2)
  1. RISPERDAL [Suspect]
     Active Substance: RISPERIDONE
     Indication: DRUG ABUSE
     Dosage: 20 MG, ONCE/SINGLE
     Route: 048
     Dates: start: 20150312, end: 20150312
  2. ALPRAZOLAM. [Suspect]
     Active Substance: ALPRAZOLAM
     Indication: DRUG ABUSE
     Dosage: 20 MG, ONCE/SINGLE
     Route: 048
     Dates: start: 20150312, end: 20150312

REACTIONS (2)
  - Self injurious behaviour [Unknown]
  - Drug abuse [Unknown]

NARRATIVE: CASE EVENT DATE: 20150312
